FAERS Safety Report 4918365-0 (Version None)
Quarter: 2006Q1

REPORT INFORMATION
  Report Type: 
  Country: None (occurrence: None)
  Receive Date: 20060217
  Receipt Date: 20060217
  Transmission Date: 20060701
  Serious: Yes (Other)
  Sender: FDA-Public Use
  Company Number: None

PATIENT
  Age: 47 Year
  Sex: Male
  Weight: 66.9056 kg

DRUGS (7)
  1. KALETRA [Suspect]
     Indication: HIV INFECTION
     Dosage: 400MG/100MG  BID  PO
     Route: 048
     Dates: start: 20060114, end: 20060206
  2. INVIRASE [Suspect]
     Indication: HIV INFECTION
     Dosage: 1000 MG BID PO
     Route: 048
     Dates: start: 20060114, end: 20060206
  3. TRUVADA [Suspect]
     Indication: HIV INFECTION
     Dosage: 1 QD  PO
     Route: 048
     Dates: start: 20060114, end: 20060206
  4. KETEK [Suspect]
     Indication: LOWER RESPIRATORY TRACT INFECTION
     Dosage: 400MG QD PO
     Route: 048
     Dates: start: 20060117, end: 20060121
  5. IMODIUM [Concomitant]
  6. METAMUCIL GLUTAMINE [Concomitant]
  7. LEVITRA [Concomitant]

REACTIONS (7)
  - ASTHENIA [None]
  - DIARRHOEA [None]
  - ELECTROCARDIOGRAM QT CORRECTED INTERVAL PROLONGED [None]
  - FATIGUE [None]
  - HYPERHIDROSIS [None]
  - LOWER RESPIRATORY TRACT INFECTION [None]
  - NEUROPATHY [None]
